FAERS Safety Report 15948877 (Version 3)
Quarter: 2020Q2

REPORT INFORMATION
  Report Type: Report from Study
  Country: IT (occurrence: IT)
  Receive Date: 20190212
  Receipt Date: 20200505
  Transmission Date: 20200713
  Serious: Yes (Other)
  Sender: FDA-Public Use
  Company Number: IT-ACCORD-106681

PATIENT
  Age: 69 Year
  Sex: Male
  Weight: 87 kg

DRUGS (1)
  1. FLUOROURACIL. [Suspect]
     Active Substance: FLUOROURACIL
     Indication: COLON CANCER
     Route: 041
     Dates: start: 20171225

REACTIONS (2)
  - Swelling [Recovering/Resolving]
  - Extravasation [Recovering/Resolving]

NARRATIVE: CASE EVENT DATE: 20171225
